FAERS Safety Report 5552899-3 (Version None)
Quarter: 2007Q4

REPORT INFORMATION
  Report Type: 
  Country: None (occurrence: None)
  Receive Date: 20071211
  Receipt Date: 20071205
  Transmission Date: 20080405
  Serious: Yes (Other)
  Sender: FDA-Public Use
  Company Number: 2007336937

PATIENT
  Sex: Male

DRUGS (1)
  1. BENADRYL [Suspect]
     Dosage: A WHOLE BOTTLE UNSPECIFIED

REACTIONS (2)
  - DYSARTHRIA [None]
  - INCORRECT DOSE ADMINISTERED [None]
